FAERS Safety Report 9301245 (Version 2)
Quarter: 2013Q4

REPORT INFORMATION
  Report Type: Spontaneous
  Country: GB (occurrence: GB)
  Receive Date: 20130521
  Receipt Date: 20131025
  Transmission Date: 20140711
  Serious: Yes (Hospitalization, Disabling)
  Sender: FDA-Public Use
  Company Number: GB-TEVA-405653ISR

PATIENT
  Age: 53 Year
  Sex: Female
  Weight: 76 kg

DRUGS (8)
  1. NITROFURANTOIN [Suspect]
     Dates: end: 20130104
  2. AMITRIPTYLINE HYDROCHLORIDE [Concomitant]
     Dates: start: 20130114
  3. DIAZEPAM [Concomitant]
     Dates: start: 20130121, end: 20130218
  4. PARACETAMOL [Concomitant]
     Dates: start: 20130121
  5. CODEINE PHOSPHATE [Concomitant]
     Dates: start: 20130125, end: 20130201
  6. HYDROCORTISONE [Concomitant]
     Dates: start: 20130201, end: 20130208
  7. LANSOPRAZOLE [Concomitant]
     Dates: start: 20130315
  8. AMOXICILLIN [Concomitant]
     Dates: start: 20130424, end: 20130429

REACTIONS (3)
  - Autoimmune hepatitis [Recovered/Resolved]
  - Fibrosis [Recovered/Resolved]
  - Jaundice [Recovered/Resolved]
